FAERS Safety Report 8449206-5 (Version None)
Quarter: 2012Q2

REPORT INFORMATION
  Report Type: 
  Country: None (occurrence: None)
  Receive Date: 20120619
  Receipt Date: 20111130
  Transmission Date: 20120825
  Serious: No
  Sender: FDA-Public Use
  Company Number: US-TEVA-2011006062

PATIENT
  Sex: Female

DRUGS (2)
  1. ANTIHISTAMINE [Concomitant]
     Indication: EYE DISORDER
  2. FENTANYL CITRATE [Suspect]
     Route: 048

REACTIONS (1)
  - EUPHORIC MOOD [None]
